FAERS Safety Report 14850598 (Version 1)
Quarter: 2018Q2

REPORT INFORMATION
  Report Type: Spontaneous
  Country: US (occurrence: US)
  Receive Date: 20180506
  Receipt Date: 20180506
  Transmission Date: 20180711
  Serious: No
  Sender: FDA-Public Use
  Company Number: US-IPSEN BIOPHARMACEUTICALS, INC.-2018-00615

PATIENT
  Sex: Female

DRUGS (7)
  1. PROTONIX [Concomitant]
     Active Substance: PANTOPRAZOLE SODIUM
  2. ASCORBIC ACID. [Concomitant]
     Active Substance: ASCORBIC ACID
  3. SOMATULINE [Suspect]
     Active Substance: LANREOTIDE ACETATE
     Indication: PRODUCT USED FOR UNKNOWN INDICATION
     Dosage: NOT REPORTED
     Route: 065
  4. WARFARIN [Concomitant]
     Active Substance: WARFARIN
  5. LOSARTAN POTASSIUM. [Concomitant]
     Active Substance: LOSARTAN POTASSIUM
  6. AFINITOR [Concomitant]
     Active Substance: EVEROLIMUS
  7. XERMELO [Suspect]
     Active Substance: TELOTRISTAT ETHYL
     Indication: NEUROENDOCRINE TUMOUR
     Dosage: 250 MG, 1-3 TIMES A DAY
     Route: 048
     Dates: start: 20170515

REACTIONS (2)
  - Hypophagia [Unknown]
  - Off label use [Unknown]

NARRATIVE: CASE EVENT DATE: 2017
